FAERS Safety Report 16107418 (Version 1)
Quarter: 2019Q1

REPORT INFORMATION
  Report Type: Spontaneous
  Country: FR (occurrence: FR)
  Receive Date: 20190322
  Receipt Date: 20190322
  Transmission Date: 20190418
  Serious: Yes (Life-Threatening)
  Sender: FDA-Public Use
  Company Number: FR-ASTRAZENECA-2019SE44025

PATIENT
  Age: 54 Year
  Sex: Male

DRUGS (3)
  1. LAMICTAL [Suspect]
     Active Substance: LAMOTRIGINE
     Indication: TOXICITY TO VARIOUS AGENTS
     Route: 048
     Dates: start: 20181023
  2. QUETIAPINE FUMARATE. [Suspect]
     Active Substance: QUETIAPINE FUMARATE
     Indication: TOXICITY TO VARIOUS AGENTS
     Route: 048
     Dates: start: 20181023
  3. THERALENE [Suspect]
     Active Substance: TRIMEPRAZINE
     Indication: TOXICITY TO VARIOUS AGENTS
     Route: 048
     Dates: start: 20181023

REACTIONS (3)
  - Coma [Unknown]
  - Urinary incontinence [Unknown]
  - Poisoning deliberate [Unknown]

NARRATIVE: CASE EVENT DATE: 20181023
